FAERS Safety Report 9712450 (Version 1)
Quarter: 2013Q4

REPORT INFORMATION
  Report Type: Spontaneous
  Country: US (occurrence: None)
  Receive Date: 20131122
  Receipt Date: 20131122
  Transmission Date: 20140711
  Serious: Yes (Hospitalization)
  Sender: FDA-Public Use
  Company Number: VAL_02827_2013

PATIENT
  Age: 33 Year
  Sex: Female
  Weight: 78 kg

DRUGS (11)
  1. METOPROLOL [Suspect]
     Indication: HYPERTENSION
     Route: 048
     Dates: start: 20130205
  2. NEBIVOLOL [Suspect]
     Indication: PRODUCT USED FOR UNKNOWN INDICATION
  3. VITAMIN D3 [Concomitant]
  4. PROTONIX [Concomitant]
  5. MAGNESIUM OXIDE [Concomitant]
  6. GLIPIZIDE [Concomitant]
  7. CLONIDINE [Concomitant]
  8. CELLCEPT [Concomitant]
  9. PREDNISONE [Concomitant]
  10. PROGRAF [Concomitant]
  11. NIFEDIPINE [Concomitant]

REACTIONS (1)
  - Glomerulonephritis membranoproliferative [None]
